FAERS Safety Report 11044079 (Version 1)
Quarter: 2015Q2

REPORT INFORMATION
  Report Type: Spontaneous
  Country: US (occurrence: None)
  Receive Date: 20150415
  Receipt Date: 20150415
  Transmission Date: 20150821
  Serious: Yes (Other)
  Sender: FDA-Public Use
  Company Number: 201504047

PATIENT
  Sex: Male

DRUGS (1)
  1. TESTIM [Suspect]
     Active Substance: TESTOSTERONE
     Indication: BLOOD TESTOSTERONE DECREASED
     Dosage: TRANSDERMAL
     Route: 062
     Dates: start: 20100801, end: 20120501

REACTIONS (2)
  - Sexual relationship change [None]
  - Pulmonary embolism [None]

NARRATIVE: CASE EVENT DATE: 201201
